FAERS Safety Report 16087788 (Version 1)
Quarter: 2019Q1

REPORT INFORMATION
  Report Type: Report from Study
  Country: FR (occurrence: FR)
  Receive Date: 20190319
  Receipt Date: 20190319
  Transmission Date: 20190418
  Serious: Yes (Hospitalization)
  Sender: FDA-Public Use
  Company Number: FR-ACCORD-092156

PATIENT
  Age: 46 Year
  Sex: Female
  Weight: 103 kg

DRUGS (9)
  1. MICROVAL [Concomitant]
     Active Substance: LEVONORGESTREL
     Dosage: UNK
     Dates: start: 20171123
  2. AMYCOR [Concomitant]
     Active Substance: BIFONAZOLE
     Dosage: UNK
     Route: 061
     Dates: start: 20160901
  3. VASELINE PURE [Concomitant]
     Active Substance: PETROLATUM
     Dosage: UNK
     Dates: start: 20160901
  4. ESIDREX [Concomitant]
     Active Substance: HYDROCHLOROTHIAZIDE
     Dosage: UNK
     Route: 048
  5. EFFEXOR [Concomitant]
     Active Substance: VENLAFAXINE HYDROCHLORIDE
     Dosage: UNK
  6. LERCANIDIPINE [Concomitant]
     Active Substance: LERCANIDIPINE
     Dosage: UNK
  7. METHOTREXATE. [Suspect]
     Active Substance: METHOTREXATE
     Indication: PSORIASIS
     Dosage: 15 MG, WEEKLY
     Route: 048
     Dates: start: 20160317, end: 20180319
  8. STELARA [Suspect]
     Active Substance: USTEKINUMAB
     Indication: PRODUCT USED FOR UNKNOWN INDICATION
     Dosage: 90 MG, EVERY 12 WEEKS,DATE OF LAST ADMINISTRATION: JUL-2018
     Route: 058
     Dates: start: 20180417
  9. FOLIC ACID. [Concomitant]
     Active Substance: FOLIC ACID
     Indication: PSORIASIS
     Dosage: 5 MG, 2X/WEEK
     Route: 048
     Dates: start: 20160317, end: 20180319

REACTIONS (4)
  - Erysipelas [Recovered/Resolved]
  - Gamma-glutamyltransferase increased [Recovered/Resolved]
  - Hepatic enzyme increased [Recovered/Resolved]
  - Metabolic syndrome [Recovered/Resolved]

NARRATIVE: CASE EVENT DATE: 201803
